FAERS Safety Report 9879403 (Version 3)
Quarter: 2014Q1

REPORT INFORMATION
  Report Type: Spontaneous
  Country: GB (occurrence: GB)
  Receive Date: 20140206
  Receipt Date: 20140228
  Transmission Date: 20141002
  Serious: Yes (Other)
  Sender: FDA-Public Use
  Company Number: GB-VERTEX PHARMACEUTICALS INC-2014-000601

PATIENT
  Age: 34 Year
  Sex: Male

DRUGS (11)
  1. INCIVO [Suspect]
     Indication: HEPATITIS C
     Dosage: 1125 MG, BID
     Route: 048
     Dates: start: 201304
  2. VIRAFERON [Suspect]
     Indication: HEPATITIS C
     Dosage: DOSAGE FORM: UNSPECIFIED, 150 MCGS 0.5 MLS
     Route: 065
     Dates: start: 201304
  3. VIRAFERON [Suspect]
     Dosage: DOSAGE FORM: UNSPECIFIED, 150 MCGS 0.5 MLS AT WEEK 19
     Route: 065
  4. VIRAFERON [Suspect]
     Dosage: DOSAGE FORM: UNSPECIFIED, 150 MCGS 0.3 MLS
     Route: 065
  5. RIBAVIRIN [Suspect]
     Indication: HEPATITIS C
     Dosage: DOSAGE FORM: UNSPECIFIED, 600 MG AM, 800 MG PM
     Route: 065
     Dates: start: 201304
  6. FUROSEMIDE [Concomitant]
  7. METHADONE [Concomitant]
  8. MIRTAZAPINE [Concomitant]
     Dosage: 30 MG, QD
  9. ADCAL D3 [Concomitant]
  10. FOLIC ACID [Concomitant]
  11. TERBUTALINE SULPHATE [Concomitant]
     Dosage: 2 PUFFS

REACTIONS (8)
  - Neutropenia [Recovering/Resolving]
  - Mood altered [Unknown]
  - Influenza like illness [Unknown]
  - Lethargy [Unknown]
  - Leukopenia [Recovering/Resolving]
  - Thrombocytopenia [Recovering/Resolving]
  - Anaemia [Recovering/Resolving]
  - Rash [Recovering/Resolving]
